FAERS Safety Report 8488692-1 (Version None)
Quarter: 2012Q2

REPORT INFORMATION
  Report Type: 
  Country: None (occurrence: None)
  Receive Date: 20120626
  Receipt Date: 20120618
  Transmission Date: 20120825
  Serious: Yes (Other)
  Sender: FDA-Public Use
  Company Number: AUR-APL-2012-02719

PATIENT
  Age: 64 Year
  Sex: Female
  Weight: 72.56 kg

DRUGS (7)
  1. LYRICA [Suspect]
     Indication: FIBROMYALGIA
     Dosage: 225 MG (75 MG, 3 IN 1 D)
     Dates: end: 20070601
  2. VENLAFAXINE HCL [Suspect]
     Indication: EMOTIONAL DISORDER
     Dosage: 225 MG (75 MG, 3 IN 1 D), 150 MG (75 MG, 2 IN 1 D)
     Dates: end: 20070601
  3. VENLAFAXINE HCL [Suspect]
     Indication: FIBROMYALGIA
     Dosage: 225 MG (75 MG, 3 IN 1 D), 150 MG (75 MG, 2 IN 1 D)
     Dates: end: 20070601
  4. VENLAFAXINE HCL [Suspect]
     Indication: CHRONIC FATIGUE SYNDROME
     Dosage: 225 MG (75 MG, 3 IN 1 D), 150 MG (75 MG, 2 IN 1 D)
     Dates: end: 20070601
  5. VENLAFAXINE HCL [Suspect]
     Indication: EMOTIONAL DISORDER
     Dosage: 225 MG (75 MG, 3 IN 1 D), 150 MG (75 MG, 2 IN 1 D)
     Dates: start: 20070601
  6. VENLAFAXINE HCL [Suspect]
     Indication: FIBROMYALGIA
     Dosage: 225 MG (75 MG, 3 IN 1 D), 150 MG (75 MG, 2 IN 1 D)
     Dates: start: 20070601
  7. VENLAFAXINE HCL [Suspect]
     Indication: CHRONIC FATIGUE SYNDROME
     Dosage: 225 MG (75 MG, 3 IN 1 D), 150 MG (75 MG, 2 IN 1 D)
     Dates: start: 20070601

REACTIONS (7)
  - BREAST CANCER [None]
  - INAPPROPRIATE SCHEDULE OF DRUG ADMINISTRATION [None]
  - PHARYNGEAL DISORDER [None]
  - NAUSEA [None]
  - UNEVALUABLE EVENT [None]
  - GASTRIC DISORDER [None]
  - PAIN [None]
